FAERS Safety Report 7774707-2 (Version None)
Quarter: 2011Q3

REPORT INFORMATION
  Report Type: 
  Country: None (occurrence: None)
  Receive Date: 20110923
  Receipt Date: 20110914
  Transmission Date: 20111222
  Serious: Yes (Hospitalization, Other)
  Sender: FDA-Public Use
  Company Number: US-ROCHE-804001

PATIENT
  Sex: Female

DRUGS (2)
  1. COPEGUS [Interacting]
     Indication: HEPATITIS C
     Route: 065
     Dates: start: 20110304
  2. PEGASYS [Suspect]
     Indication: HEPATITIS C
     Route: 065
     Dates: start: 20110304

REACTIONS (6)
  - FALL [None]
  - WHITE BLOOD CELL COUNT DECREASED [None]
  - MIGRAINE [None]
  - RHEUMATOID ARTHRITIS [None]
  - DECREASED APPETITE [None]
  - WEIGHT DECREASED [None]
